FAERS Safety Report 6785571-2 (Version None)
Quarter: 2010Q2

REPORT INFORMATION
  Report Type: 
  Country: None (occurrence: None)
  Receive Date: 20100623
  Receipt Date: 20100609
  Transmission Date: 20101027
  Serious: Yes (Hospitalization, Other)
  Sender: FDA-Public Use
  Company Number: US-BAYER-200930977NA

PATIENT
  Age: 46 Year
  Sex: Female
  Weight: 63 kg

DRUGS (7)
  1. YAZ [Suspect]
     Indication: DRUG USE FOR UNKNOWN INDICATION
     Route: 048
     Dates: start: 20040101, end: 20080101
  2. YASMIN [Suspect]
     Indication: CONTRACEPTION
     Route: 048
     Dates: start: 20040301, end: 20080618
  3. OCELLA [Suspect]
     Indication: CONTRACEPTION
     Route: 048
     Dates: start: 20080719, end: 20080818
  4. ONE A DAY VITAMIN [Concomitant]
  5. ANTIBIOTICS [Concomitant]
  6. IBUPROFEN [Concomitant]
  7. PORTIA-21 [Concomitant]
     Dates: start: 20040101, end: 20040101

REACTIONS (2)
  - EMBOLISM [None]
  - PAIN [None]
